FAERS Safety Report 16117364 (Version 1)
Quarter: 2019Q2

REPORT INFORMATION
  Report Type: Spontaneous
  Country: US (occurrence: US)
  Receive Date: 20190325
  Receipt Date: 20190325
  Transmission Date: 20190711
  Serious: Yes (Life-Threatening, Disabling, Congenital Anomaly)
  Sender: FDA-Public Use
  Company Number: None

PATIENT
  Age: 74 Year
  Sex: Female
  Weight: 90 kg

DRUGS (9)
  1. MULTIVITAMIN [Concomitant]
     Active Substance: VITAMINS
  2. LOVASTATIN. [Concomitant]
     Active Substance: LOVASTATIN
  3. TORSEMIDE. [Concomitant]
     Active Substance: TORSEMIDE
  4. MYCOPHENOLATE [Concomitant]
     Active Substance: MYCOPHENOLIC ACID
  5. LOSARTAN POTASSIUM 100MG [Suspect]
     Active Substance: LOSARTAN POTASSIUM
     Indication: BLOOD PRESSURE MEASUREMENT
     Dosage: ?          QUANTITY:30 TABLET(S);?
     Route: 048
     Dates: start: 20170801, end: 20180801
  6. IRON [Concomitant]
     Active Substance: IRON
  7. XARELTO [Suspect]
     Active Substance: RIVAROXABAN
  8. COENZYME [Concomitant]
     Active Substance: UBIDECARENONE
  9. RAMPIRIL [Concomitant]
     Active Substance: RAMIPRIL

REACTIONS (1)
  - Breast cancer [None]

NARRATIVE: CASE EVENT DATE: 20180802
